FAERS Safety Report 8102781-2 (Version None)
Quarter: 2012Q1

REPORT INFORMATION
  Report Type: 
  Country: None (occurrence: None)
  Receive Date: 20120201
  Receipt Date: 20120127
  Transmission Date: 20120608
  Serious: Yes (Hospitalization)
  Sender: FDA-Public Use
  Company Number: CA-SANOFI-AVENTIS-2011SA071071

PATIENT
  Age: 68 Year
  Sex: Male
  Weight: 95 kg

DRUGS (4)
  1. PREDNISONE TAB [Suspect]
     Indication: PROSTATE CANCER METASTATIC
     Route: 048
  2. JEVTANA KIT [Suspect]
     Indication: PROSTATE CANCER METASTATIC
     Route: 042
     Dates: start: 20111013, end: 20111013
  3. ENOXAPARIN [Concomitant]
     Route: 058
  4. NEUPOGEN [Concomitant]
     Route: 058

REACTIONS (1)
  - UPPER GASTROINTESTINAL HAEMORRHAGE [None]
